FAERS Safety Report 18980332 (Version 1)
Quarter: 2021Q1

REPORT INFORMATION
  Report Type: Report from Study
  Country: JP (occurrence: JP)
  Receive Date: 20210308
  Receipt Date: 20210308
  Transmission Date: 20210420
  Serious: Yes (Other)
  Sender: FDA-Public Use
  Company Number: JP-AUROBINDO-AUR-APL-2019-049947

PATIENT
  Age: 71 Year
  Sex: Male

DRUGS (25)
  1. DIPHENHYDRAMINE. [Concomitant]
     Active Substance: DIPHENHYDRAMINE
     Dosage: 30 MILLIGRAM, ONCE A DAY
     Route: 048
     Dates: start: 20091208, end: 20091208
  2. ITRIZOLE [Concomitant]
     Active Substance: ITRACONAZOLE
     Dosage: 150 MILLIGRAM
     Route: 048
     Dates: start: 20100119, end: 20100120
  3. LOXONIN [Concomitant]
     Active Substance: LOXOPROFEN SODIUM
     Indication: PROPHYLAXIS
     Dosage: 60 MILLIGRAM, ONCE A DAY
     Route: 048
     Dates: start: 20091201, end: 20091201
  4. RITUXAN [Concomitant]
     Active Substance: RITUXIMAB
     Indication: FOLLICLE CENTRE LYMPHOMA, FOLLICULAR GRADE I, II, III STAGE I
     Dosage: 250 MILLIGRAM/SQ. METER
     Route: 041
     Dates: start: 20091201, end: 20091201
  5. HYDROCORTISONE SODIUM SUCCINATE [Concomitant]
     Active Substance: HYDROCORTISONE SODIUM SUCCINATE
     Dosage: 200 MILLIGRAM, ONCE A DAY
     Route: 042
     Dates: start: 20091208, end: 20091208
  6. RESTAMIN [Concomitant]
     Active Substance: DIPHENHYDRAMINE
     Dosage: 30 MILLIGRAM
     Route: 048
     Dates: start: 20091208, end: 20091208
  7. DIPHENHYDRAMINE. [Concomitant]
     Active Substance: DIPHENHYDRAMINE
     Indication: PREMEDICATION
     Dosage: 30 MILLIGRAM, ONCE A DAY
     Route: 048
     Dates: start: 20091201, end: 20091201
  8. LOXONIN [Concomitant]
     Active Substance: LOXOPROFEN SODIUM
     Indication: PREMEDICATION
     Dosage: 60 MILLIGRAM, ONCE A DAY
     Route: 048
     Dates: start: 20091208, end: 20091208
  9. MAGLAX [Concomitant]
     Active Substance: MAGNESIUM OXIDE
     Indication: PROPHYLAXIS
     Dosage: 990 MILLIGRAM, ONCE A DAY
     Route: 048
     Dates: start: 20091203, end: 20091209
  10. RITUXAN [Concomitant]
     Active Substance: RITUXIMAB
     Dosage: 250 MILLIGRAM/SQ. METER
     Route: 041
     Dates: start: 20091208, end: 20091208
  11. ZEVALIN [Suspect]
     Active Substance: IBRITUMOMAB TIUXETAN
     Indication: FOLLICLE CENTRE LYMPHOMA, FOLLICULAR GRADE I, II, III STAGE I
     Dosage: 786 MBQ, UNK
     Route: 042
     Dates: start: 20091208, end: 20091208
  12. CIPROXAN [Concomitant]
     Active Substance: CIPROFLOXACIN
     Indication: PROPHYLAXIS
     Dosage: 200 MILLIGRAM, ONCE A DAY
     Route: 048
     Dates: start: 20100101, end: 20100120
  13. CYTOTEC [Concomitant]
     Active Substance: MISOPROSTOL
     Indication: PREMEDICATION
     Dosage: 200 MILLIGRAM
     Route: 048
     Dates: start: 20091201, end: 20091201
  14. MISOPROSTOL. [Concomitant]
     Active Substance: MISOPROSTOL
     Indication: PREMEDICATION
     Dosage: 200 MILLIGRAM, ONCE A DAY
     Route: 048
     Dates: start: 20091201, end: 20091201
  15. RESTAMIN [Concomitant]
     Active Substance: DIPHENHYDRAMINE
     Indication: PREMEDICATION
     Dosage: 30 MILLIGRAM
     Route: 048
     Dates: start: 20091201, end: 20091201
  16. SOLU?CORTEF [Concomitant]
     Active Substance: HYDROCORTISONE SODIUM SUCCINATE
     Indication: PREMEDICATION
     Route: 041
     Dates: start: 20091201, end: 20091201
  17. ZEVALIN [Suspect]
     Active Substance: IBRITUMOMAB TIUXETAN
     Indication: FOLLICLE CENTRE LYMPHOMA, FOLLICULAR GRADE I, II, III STAGE I
     Dosage: 130 MEGABECQUEREL, ONCE A DAY
     Route: 042
     Dates: start: 20091201, end: 20091201
  18. RITUXIMAB. [Suspect]
     Active Substance: RITUXIMAB
     Indication: FOLLICLE CENTRE LYMPHOMA, FOLLICULAR GRADE I, II, III STAGE I
     Dosage: 250 MG/M2, ONCE A DAY
     Route: 042
     Dates: start: 20091201, end: 20091201
  19. ITRIZOLE [Concomitant]
     Active Substance: ITRACONAZOLE
     Dosage: 100 MILLIGRAM
     Route: 048
     Dates: start: 20100121, end: 20100125
  20. SOLU?CORTEF [Concomitant]
     Active Substance: HYDROCORTISONE SODIUM SUCCINATE
     Dosage: 200 MILLIGRAM
     Route: 041
     Dates: start: 20091208, end: 20091208
  21. CYTOTEC [Concomitant]
     Active Substance: MISOPROSTOL
     Dosage: 200 MILLIGRAM
     Route: 048
     Dates: start: 20091208, end: 20091208
  22. HYDROCORTISONE SODIUM SUCCINATE [Concomitant]
     Active Substance: HYDROCORTISONE SODIUM SUCCINATE
     Indication: PREMEDICATION
     Dosage: 200 MILLIGRAM, ONCE A DAY
     Route: 042
     Dates: start: 20091201, end: 20091201
  23. ITRIZOLE [Concomitant]
     Active Substance: ITRACONAZOLE
     Indication: PROPHYLAXIS
     Dosage: 50 MILLIGRAM, ONCE A DAY
     Route: 048
     Dates: start: 20100101, end: 20100118
  24. MISOPROSTOL. [Concomitant]
     Active Substance: MISOPROSTOL
     Dosage: 200 MILLIGRAM, ONCE A DAY
     Route: 048
     Dates: start: 20091208, end: 20091208
  25. RITUXIMAB. [Suspect]
     Active Substance: RITUXIMAB
     Dosage: 250 MG/M2, ONCE A DAY
     Route: 042
     Dates: start: 20091208, end: 20091208

REACTIONS (5)
  - Granulocytopenia [Recovered/Resolved]
  - Leukopenia [Recovered/Resolved]
  - Hyperglycaemia [Recovered/Resolved]
  - Anaemia [Not Recovered/Not Resolved]
  - Platelet count decreased [Recovered/Resolved]

NARRATIVE: CASE EVENT DATE: 20091205
